FAERS Safety Report 22868254 (Version 3)
Quarter: 2024Q2

REPORT INFORMATION
  Report Type: Spontaneous
  Country: US (occurrence: US)
  Receive Date: 20230825
  Receipt Date: 20240605
  Transmission Date: 20240716
  Serious: No
  Sender: FDA-Public Use
  Company Number: US-CYCLE PHARMACEUTICALS LTD-2023-CYC-000059

PATIENT

DRUGS (2)
  1. NITYR [Suspect]
     Active Substance: NITISINONE
     Indication: Tyrosinaemia
     Dosage: 2 MG, 1 TABLET , EVERY ONCE DAILY IN THE MORNING
     Route: 048
  2. NITYR [Suspect]
     Active Substance: NITISINONE
     Dosage: DISSOLVE ONE TABLET IN 10 ML WATER AND TAKE 1 ML OF RESULTING SOLUTION BY MOUTH
     Route: 048

REACTIONS (6)
  - Anxiety [Unknown]
  - Eating disorder [Recovering/Resolving]
  - Weight increased [Unknown]
  - Product dose omission issue [Unknown]
  - Product preparation issue [Unknown]
  - Incorrect dose administered [Unknown]

NARRATIVE: CASE EVENT DATE: 20230101
